FAERS Safety Report 5371615-1 (Version None)
Quarter: 2007Q2

REPORT INFORMATION
  Report Type: 
  Country: None (occurrence: None)
  Receive Date: 20070615
  Receipt Date: 20060711
  Transmission Date: 20071010
  Serious: Yes (Other)
  Sender: FDA-Public Use
  Company Number: 200613344US

PATIENT
  Age: 68 Year
  Sex: Female

DRUGS (4)
  1. LANTUS [Suspect]
     Indication: DIABETES MELLITUS NON-INSULIN-DEPENDENT
     Dosage: 10 U HS SC; A FEW DAYS
     Route: 058
     Dates: start: 20060201, end: 20060201
  2. CARDIZEM [Concomitant]
  3. ESOMEPRAZOLE MAGNESIUM [Concomitant]
  4. ASPIRIN [Concomitant]

REACTIONS (7)
  - DYSPNOEA [None]
  - FEELING HOT [None]
  - GAIT DISTURBANCE [None]
  - HEADACHE [None]
  - HYPERSENSITIVITY [None]
  - NAUSEA [None]
  - ORTHOPNOEA [None]
